FAERS Safety Report 6140888-X (Version None)
Quarter: 2009Q2

REPORT INFORMATION
  Report Type: 
  Country: None (occurrence: None)
  Receive Date: 20090402
  Receipt Date: 20080401
  Transmission Date: 20091009
  Serious: No
  Sender: FDA-Public Use
  Company Number: US-KINGPHARMUSA00001-K200800397

PATIENT
  Age: 63 Year
  Sex: Female

DRUGS (5)
  1. SKELAXIN [Suspect]
     Indication: BACK PAIN
     Dosage: 0.5 TABLET, SINGLE
     Route: 048
     Dates: start: 20080331, end: 20080331
  2. CELEBREX [Suspect]
     Indication: BACK PAIN
     Dosage: 200 MG, SINGLE
     Route: 048
     Dates: start: 20080331, end: 20080331
  3. DEPAKOTE [Concomitant]
     Indication: UNEVALUABLE EVENT
     Dosage: 625 UNK, QD
     Route: 048
  4. CLONAZEPAM [Concomitant]
     Indication: ANXIETY
     Dosage: .5 MG, QD
     Route: 048
  5. CLONAZEPAM [Concomitant]
     Dosage: .5 MG, QD
     Route: 048

REACTIONS (1)
  - HEADACHE [None]
